FAERS Safety Report 21154658 (Version 1)
Quarter: 2022Q3

REPORT INFORMATION
  Report Type: Report from Study
  Country: US (occurrence: US)
  Receive Date: 20220801
  Receipt Date: 20220801
  Transmission Date: 20221026
  Serious: Yes (Hospitalization)
  Sender: FDA-Public Use
  Company Number: US-GILEAD-2022-0590893

PATIENT
  Sex: Female

DRUGS (28)
  1. AZTREONAM LYSINE [Suspect]
     Active Substance: AZTREONAM LYSINE
     Indication: Cystic fibrosis lung
     Dosage: UNK
     Route: 065
  2. AZTREONAM LYSINE [Suspect]
     Active Substance: AZTREONAM LYSINE
     Indication: Pseudomonas infection
  3. ALBUTEROL SULFATE [Concomitant]
     Active Substance: ALBUTEROL SULFATE
  4. NYSTATIN [Concomitant]
     Active Substance: NYSTATIN
  5. LIDOCAINE\PRILOCAINE HYDROCHLORIDE [Concomitant]
     Active Substance: LIDOCAINE\PRILOCAINE HYDROCHLORIDE
  6. PANTOPRAZOLE SODIUM [Concomitant]
     Active Substance: PANTOPRAZOLE SODIUM
  7. SODIUM CHLORIDE [Concomitant]
     Active Substance: SODIUM CHLORIDE
  8. TYLENOL [Concomitant]
     Active Substance: ACETAMINOPHEN
  9. SENNA [SENNA ALEXANDRINA LEAF] [Concomitant]
  10. FERROUS SULFATE [Concomitant]
     Active Substance: FERROUS SULFATE
  11. URSODIOL [Concomitant]
     Active Substance: URSODIOL
  12. RETINOL [Concomitant]
     Active Substance: RETINOL
  13. AMITRIPTYLINE [Concomitant]
     Active Substance: AMITRIPTYLINE
  14. DULOXETINE [Concomitant]
     Active Substance: DULOXETINE
  15. VIT D [VITAMIN D NOS] [Concomitant]
  16. TRIKAFTA [Concomitant]
     Active Substance: ELEXACAFTOR\IVACAFTOR\TEZACAFTOR
  17. PULMOZYME [Concomitant]
     Active Substance: DORNASE ALFA
  18. METOPROLOL [Concomitant]
     Active Substance: METOPROLOL
  19. POLYETHYLENE GLYCOLS [Concomitant]
     Active Substance: POLYETHYLENE GLYCOLS
  20. OXYCODONE [Concomitant]
     Active Substance: OXYCODONE
  21. ONDANSETRON [Concomitant]
     Active Substance: ONDANSETRON
  22. RIZATRIPTAN [Concomitant]
     Active Substance: RIZATRIPTAN
  23. SALMETEROL [Concomitant]
     Active Substance: SALMETEROL
  24. NARCAN [Concomitant]
     Active Substance: NALOXONE HYDROCHLORIDE
  25. COLISTIMETHATE SODIUM [Concomitant]
     Active Substance: COLISTIMETHATE SODIUM
  26. ZENPEP [Concomitant]
     Active Substance: PANCRELIPASE AMYLASE\PANCRELIPASE LIPASE\PANCRELIPASE PROTEASE
  27. MEROPENEM [Concomitant]
     Active Substance: MEROPENEM
  28. FLUTICASONE [Concomitant]
     Active Substance: FLUTICASONE

REACTIONS (4)
  - Obsessive-compulsive personality disorder [Not Recovered/Not Resolved]
  - Oral mucosal blistering [Unknown]
  - COVID-19 [Unknown]
  - Weight decreased [Unknown]
